FAERS Safety Report 25897679 (Version 1)
Quarter: 2025Q4

REPORT INFORMATION
  Report Type: Spontaneous
  Country: EU (occurrence: EU)
  Receive Date: 20251008
  Receipt Date: 20251008
  Transmission Date: 20260117
  Serious: Yes (Other)
  Sender: NOVARTIS
  Company Number: EU-002147023-NVSC2025FR151098

PATIENT
  Age: 69 Year
  Sex: Female

DRUGS (12)
  1. KISQALI [Suspect]
     Active Substance: RIBOCICLIB SUCCINATE
     Indication: Breast cancer stage IV
     Dosage: 600 MG
     Route: 065
     Dates: start: 20250711, end: 20250825
  2. KISQALI [Suspect]
     Active Substance: RIBOCICLIB SUCCINATE
     Indication: Metastases to bone
  3. KISQALI [Suspect]
     Active Substance: RIBOCICLIB SUCCINATE
     Indication: Metastases to pleura
  4. KISQALI [Suspect]
     Active Substance: RIBOCICLIB SUCCINATE
     Indication: Metastases to lung
  5. KISQALI [Suspect]
     Active Substance: RIBOCICLIB SUCCINATE
     Indication: Metastases to lymph nodes
  6. KISQALI [Suspect]
     Active Substance: RIBOCICLIB SUCCINATE
     Indication: Metastases to adrenals
  7. LETROZOLE [Suspect]
     Active Substance: LETROZOLE
     Indication: Breast cancer stage IV
     Dosage: 600 MG
     Route: 065
     Dates: start: 20250711
  8. LETROZOLE [Suspect]
     Active Substance: LETROZOLE
     Indication: Metastases to bone
  9. LETROZOLE [Suspect]
     Active Substance: LETROZOLE
     Indication: Metastases to pleura
  10. LETROZOLE [Suspect]
     Active Substance: LETROZOLE
     Indication: Metastases to lung
  11. LETROZOLE [Suspect]
     Active Substance: LETROZOLE
     Indication: Metastases to lymph nodes
  12. LETROZOLE [Suspect]
     Active Substance: LETROZOLE
     Indication: Metastases to adrenals

REACTIONS (1)
  - Hepatic cytolysis [Not Recovered/Not Resolved]

NARRATIVE: CASE EVENT DATE: 20250825
